FAERS Safety Report 24333625 (Version 1)
Quarter: 2024Q3

REPORT INFORMATION
  Report Type: Spontaneous
  Country: GB (occurrence: GB)
  Receive Date: 20240918
  Receipt Date: 20240918
  Transmission Date: 20241017
  Serious: Yes (Other)
  Sender: SK LIFE SCIENCE
  Company Number: GB-ACRAF SpA-2024-035717

PATIENT

DRUGS (3)
  1. XCOPRI [Suspect]
     Active Substance: CENOBAMATE
     Indication: Idiopathic generalised epilepsy
     Dosage: 12.5MG ONCE AT NIGHT  (12.5 MG,1 IN 1)
     Route: 065
  2. XCOPRI [Suspect]
     Active Substance: CENOBAMATE
     Indication: Conversion disorder
  3. ZONISAMIDE [Concomitant]
     Active Substance: ZONISAMIDE
     Indication: Product used for unknown indication
     Dosage: 300 TWICE A DAY (300 MG, 2)
     Route: 065

REACTIONS (9)
  - Petit mal epilepsy [Unknown]
  - Condition aggravated [Unknown]
  - Off label use [Unknown]
  - Anxiety [Unknown]
  - Fatigue [Unknown]
  - Dizziness [Unknown]
  - Headache [Unknown]
  - Confusional state [Unknown]
  - Depressed mood [Unknown]
